FAERS Safety Report 17842418 (Version 1)
Quarter: 2020Q2

REPORT INFORMATION
  Report Type: Spontaneous
  Country: GB (occurrence: GB)
  Receive Date: 20200529
  Receipt Date: 20200529
  Transmission Date: 20200714
  Serious: Yes (Hospitalization)
  Sender: FDA-Public Use
  Company Number: GB-ELI_LILLY_AND_COMPANY-GB202005008125

PATIENT
  Age: 66 Year
  Sex: Male
  Weight: 81 kg

DRUGS (12)
  1. MIRTAZAPINE. [Concomitant]
     Active Substance: MIRTAZAPINE
  2. AMLODIPINE [Concomitant]
     Active Substance: AMLODIPINE BESYLATE
  3. RAMIPRIL. [Concomitant]
     Active Substance: RAMIPRIL
  4. CANAGLIFLOZIN [Concomitant]
     Active Substance: CANAGLIFLOZIN
  5. DULAGLUTIDE. [Suspect]
     Active Substance: DULAGLUTIDE
     Indication: TYPE 2 DIABETES MELLITUS
     Route: 058
  6. ATORVASTATIN [Concomitant]
     Active Substance: ATORVASTATIN
  7. BENDROFLUMETHIAZIDE [Concomitant]
     Active Substance: BENDROFLUMETHIAZIDE
  8. LANSOPRAZOLE. [Concomitant]
     Active Substance: LANSOPRAZOLE
  9. METFORMIN [Concomitant]
     Active Substance: METFORMIN HYDROCHLORIDE
  10. BISOPROLOL [Concomitant]
     Active Substance: BISOPROLOL
  11. PIOGLITAZONE. [Concomitant]
     Active Substance: PIOGLITAZONE
  12. ALLOPURINOL. [Concomitant]
     Active Substance: ALLOPURINOL

REACTIONS (5)
  - Blood creatinine increased [Unknown]
  - Gastrointestinal disorder [Unknown]
  - Acute kidney injury [Recovering/Resolving]
  - Blood magnesium decreased [Unknown]
  - Blood calcium decreased [Unknown]

NARRATIVE: CASE EVENT DATE: 20200508
